FAERS Safety Report 25042896 (Version 1)
Quarter: 2025Q1

REPORT INFORMATION
  Report Type: Spontaneous
  Country: DE (occurrence: DE)
  Receive Date: 20250305
  Receipt Date: 20250305
  Transmission Date: 20250409
  Serious: Yes (Other)
  Sender: MYLAN
  Company Number: DE-SANDOZ-SDZ2024DE104937

PATIENT
  Sex: Male

DRUGS (2)
  1. GALANTAMINE [Suspect]
     Active Substance: GALANTAMINE
     Indication: Dementia
     Dosage: 16 MILLIGRAM, QD (1 X 16 MG) (DOSAGE 1)
  2. GALANTAMINE [Suspect]
     Active Substance: GALANTAMINE
     Indication: Dementia
     Dosage: 8 MILLIGRAM, BID (2 X 8 MG)

REACTIONS (7)
  - Dementia [Unknown]
  - Adverse reaction [Not Recovered/Not Resolved]
  - Weight decreased [Not Recovered/Not Resolved]
  - Dizziness [Not Recovered/Not Resolved]
  - Fatigue [Not Recovered/Not Resolved]
  - Product availability issue [Unknown]
  - Product substitution issue [Unknown]
